FAERS Safety Report 15276068 (Version 1)
Quarter: 2018Q3

REPORT INFORMATION
  Report Type: Spontaneous
  Country: US (occurrence: US)
  Receive Date: 20180727
  Receipt Date: 20180727
  Transmission Date: 20181010
  Serious: No
  Sender: FDA-Public Use
  Company Number: None

PATIENT
  Age: 43 Year
  Sex: Female

DRUGS (3)
  1. AMOXICILLIN. [Suspect]
     Active Substance: AMOXICILLIN
     Indication: PROPHYLAXIS
     Route: 048
     Dates: start: 20180501, end: 20180501
  2. METOPROLOL. [Concomitant]
     Active Substance: METOPROLOL
  3. LISINOPRIL. [Concomitant]
     Active Substance: LISINOPRIL

REACTIONS (8)
  - Swelling [None]
  - Mental status changes [None]
  - Unresponsive to stimuli [None]
  - Pruritus generalised [None]
  - Hypotension [None]
  - Dyspnoea [None]
  - Cold sweat [None]
  - Swollen tongue [None]

NARRATIVE: CASE EVENT DATE: 20180501
